FAERS Safety Report 24154821 (Version 9)
Quarter: 2025Q1

REPORT INFORMATION
  Report Type: Report from Study
  Country: US (occurrence: US)
  Receive Date: 20240731
  Receipt Date: 20250326
  Transmission Date: 20250409
  Serious: No
  Sender: DECIPHERA PHARMACEUTICALS
  Company Number: US-DECIPHERA PHARMACEUTICALS LLC-2024US000616

PATIENT
  Age: 84 Year
  Sex: Female
  Weight: 107.7 kg

DRUGS (6)
  1. QINLOCK [Suspect]
     Active Substance: RIPRETINIB
     Indication: Gastrointestinal stromal tumour
     Dosage: 50 MILLIGRAM, QD (1 TABLET ONE DAY AND ALTERNATING WITH 2 TABLETS THE NEXT DAY)
     Route: 048
     Dates: start: 20240612
  2. QINLOCK [Suspect]
     Active Substance: RIPRETINIB
     Route: 048
     Dates: start: 20240613, end: 2024
  3. QINLOCK [Suspect]
     Active Substance: RIPRETINIB
     Route: 048
     Dates: start: 2024, end: 2024
  4. QINLOCK [Suspect]
     Active Substance: RIPRETINIB
     Dosage: 50 MILLIGRAM, QD
     Route: 048
     Dates: start: 2024
  5. QINLOCK [Suspect]
     Active Substance: RIPRETINIB
     Dosage: 100 MILLIGRAM, QD (50 MILLIGRAM TABLET ONE DAY AND 2 TABLETS: 100 MG THE NEXT DAY AND REPEATING)
     Route: 048
     Dates: start: 2024
  6. QINLOCK [Suspect]
     Active Substance: RIPRETINIB
     Dosage: 50 MILLIGRAM, QD
     Route: 048
     Dates: start: 202410

REACTIONS (11)
  - Blister [Recovered/Resolved]
  - Blood pressure increased [Recovered/Resolved]
  - Dysphonia [Recovered/Resolved]
  - Rash [Recovering/Resolving]
  - Fatigue [Recovered/Resolved]
  - Nausea [Recovering/Resolving]
  - Alopecia [Recovered/Resolved]
  - Diarrhoea [Recovered/Resolved]
  - Underdose [Unknown]
  - Inappropriate schedule of product administration [Unknown]
  - Extra dose administered [Unknown]

NARRATIVE: CASE EVENT DATE: 20240101
